FAERS Safety Report 5991459-7 (Version None)
Quarter: 2008Q4

REPORT INFORMATION
  Report Type: 
  Country: None (occurrence: None)
  Receive Date: 20081202
  Receipt Date: 20071019
  Transmission Date: 20090506
  Serious: Yes (Disabling)
  Sender: FDA-Public Use
  Company Number: WAES 0606USA03516

PATIENT
  Age: 50 Year
  Sex: Female

DRUGS (10)
  1. FOSAMAX [Suspect]
     Indication: OSTEOPOROSIS
     Dosage: 70 MG/WKY/PO
     Route: 048
     Dates: start: 20030513, end: 20060101
  2. CALTRATE [Concomitant]
  3. ASCORBIC (+) VITAMIN B COMP [Concomitant]
  4. CALCIUM (UNSPECIFIED) [Concomitant]
  5. CALCIUM CITRATE (+) MAGNESIUM [Concomitant]
  6. CYCLOBENZAPRINE HCL [Concomitant]
  7. IBUPROFEN [Concomitant]
  8. VITAMIN B (UNSPECIFIED) [Concomitant]
  9. VITAMIN E [Concomitant]
  10. VITAMINS (UNSPECIFIED) [Concomitant]

REACTIONS (11)
  - DEPRESSION [None]
  - DIVERTICULITIS [None]
  - FATIGUE [None]
  - GASTROOESOPHAGEAL REFLUX DISEASE [None]
  - HYPOAESTHESIA [None]
  - LEUKOCYTOSIS [None]
  - MUSCLE SPASMS [None]
  - OSTEONECROSIS [None]
  - SINUSITIS [None]
  - UPPER RESPIRATORY TRACT INFECTION [None]
  - VERTIGO [None]
